FAERS Safety Report 7383064-5 (Version None)
Quarter: 2011Q1

REPORT INFORMATION
  Report Type: 
  Country: None (occurrence: None)
  Receive Date: 20110330
  Receipt Date: 20110325
  Transmission Date: 20110831
  Serious: No
  Sender: FDA-Public Use
  Company Number: US-PFIZER INC-2011066969

PATIENT
  Sex: Female
  Weight: 59.864 kg

DRUGS (1)
  1. PRISTIQ [Suspect]
     Dosage: UNK
     Dates: start: 20100401

REACTIONS (4)
  - FATIGUE [None]
  - PLATELET COUNT INCREASED [None]
  - LIVER DISORDER [None]
  - DRUG INEFFECTIVE [None]
